FAERS Safety Report 7834920-2 (Version None)
Quarter: 2011Q4

REPORT INFORMATION
  Report Type: 
  Country: None (occurrence: None)
  Receive Date: 20111024
  Receipt Date: 20111020
  Transmission Date: 20120403
  Serious: Yes (Other)
  Sender: FDA-Public Use
  Company Number: DE-JNJFOC-20111008392

PATIENT
  Sex: Female
  Weight: 61 kg

DRUGS (6)
  1. KEVATRIL [Concomitant]
     Indication: PRODUCT USED FOR UNKNOWN INDICATION
     Route: 042
     Dates: start: 20110621, end: 20110913
  2. DOXORUBICIN HCL [Suspect]
     Route: 042
     Dates: start: 20110621, end: 20110913
  3. FENISTIL [Concomitant]
     Indication: PRODUCT USED FOR UNKNOWN INDICATION
     Route: 065
     Dates: start: 20110621, end: 20110913
  4. RANITIDINE HCL [Concomitant]
     Indication: PRODUCT USED FOR UNKNOWN INDICATION
     Route: 065
     Dates: start: 20110621, end: 20110913
  5. DOXORUBICIN HCL [Suspect]
     Indication: BREAST CANCER
     Route: 042
  6. DEXAMETHASONE [Concomitant]
     Indication: PRODUCT USED FOR UNKNOWN INDICATION
     Route: 042
     Dates: start: 20110621, end: 20110913

REACTIONS (2)
  - ALVEOLITIS [None]
  - OBLITERATIVE BRONCHIOLITIS [None]
